FAERS Safety Report 17886030 (Version 1)
Quarter: 2020Q2

REPORT INFORMATION
  Report Type: Report from Study
  Country: US (occurrence: US)
  Receive Date: 20200611
  Receipt Date: 20200611
  Transmission Date: 20200714
  Serious: Yes (Other)
  Sender: FDA-Public Use
  Company Number: US-ACTELION-A-US2019-187671

PATIENT
  Age: 79 Year
  Sex: Female

DRUGS (1)
  1. UPTRAVI [Suspect]
     Active Substance: SELEXIPAG
     Indication: PULMONARY ARTERIAL HYPERTENSION
     Dosage: 800 MCG, BID
     Route: 048
     Dates: start: 20180803

REACTIONS (11)
  - Fall [Unknown]
  - Eye contusion [Unknown]
  - Blood pressure increased [Unknown]
  - Musculoskeletal chest pain [Unknown]
  - Alopecia [Unknown]
  - Oedema peripheral [Unknown]
  - Acrochordon [Unknown]
  - Dizziness [Unknown]
  - Bone contusion [Unknown]
  - Chest pain [Unknown]
  - Dyspnoea [Not Recovered/Not Resolved]

NARRATIVE: CASE EVENT DATE: 20190204
